FAERS Safety Report 5126306-9 (Version None)
Quarter: 2006Q3

REPORT INFORMATION
  Report Type: 
  Country: None (occurrence: None)
  Receive Date: 20060825
  Receipt Date: 20060109
  Transmission Date: 20061208
  Serious: Yes (Death, Hospitalization)
  Sender: FDA-Public Use
  Company Number: 05P-163-0318654-00

PATIENT
  Age: 81 Year
  Sex: Female

DRUGS (10)
  1. SYNTHROID [Suspect]
     Indication: HYPOTHYROIDISM
     Dosage: 100 MCG, 1 IN 1  D, PER ORAL
     Route: 048
     Dates: start: 19860612, end: 20051203
  2. DILTIAZEM HYDROCHLORIDE [Concomitant]
  3. QUINAPRIL HCL [Concomitant]
  4. BUMETANIDE [Concomitant]
  5. DOXEPIN HYDROCHLORIDE [Concomitant]
  6. SETRALINE HCL [Concomitant]
  7. DARVOCET-N 100 [Concomitant]
  8. GLIBENCLAMIDE [Concomitant]
  9. QUININE SULFATE [Concomitant]
  10. MENOXIDIL [Concomitant]

REACTIONS (1)
  - DEATH [None]
